FAERS Safety Report 18629515 (Version 1)
Quarter: 2020Q4

REPORT INFORMATION
  Report Type: Report from Study
  Country: JP (occurrence: JP)
  Receive Date: 20201217
  Receipt Date: 20201217
  Transmission Date: 20210114
  Serious: Yes (Other)
  Sender: FDA-Public Use
  Company Number: JP-ASTRAZENECA-2020SF68644

PATIENT
  Age: 50 Year
  Sex: Female

DRUGS (1)
  1. OLAPARIB. [Suspect]
     Active Substance: OLAPARIB
     Indication: OVARIAN CANCER
     Dosage: DOSE WAS REDUCED TO 200 MG THEN EVENTUALLY STOPPED PRESCRIPTION IN APRIL 2019
     Route: 048
     Dates: start: 201903, end: 201904

REACTIONS (2)
  - Anaemia [Unknown]
  - Ileus [Unknown]

NARRATIVE: CASE EVENT DATE: 2019
